FAERS Safety Report 7999598-6 (Version None)
Quarter: 2011Q4

REPORT INFORMATION
  Report Type: 
  Country: None (occurrence: None)
  Receive Date: 20111221
  Receipt Date: 20111213
  Transmission Date: 20120403
  Serious: Yes (Death, Hospitalization)
  Sender: FDA-Public Use
  Company Number: US-MERCK-1104USA02927

PATIENT
  Age: 65 Year
  Sex: Female

DRUGS (2)
  1. FOSAMAX [Suspect]
     Indication: OSTEOPOROSIS
     Route: 048
     Dates: start: 20000901
  2. FOSAMAX PLUS D [Suspect]
     Indication: OSTEOPOROSIS
     Route: 048

REACTIONS (50)
  - PERITONITIS BACTERIAL [None]
  - PORTAL HYPERTENSIVE GASTROPATHY [None]
  - VARICES OESOPHAGEAL [None]
  - KYPHOSIS [None]
  - FEMUR FRACTURE [None]
  - HYPOMAGNESAEMIA [None]
  - HEPATIC CIRRHOSIS [None]
  - SMALL INTESTINAL STENOSIS [None]
  - MALNUTRITION [None]
  - SPLENOMEGALY [None]
  - INCREASED TENDENCY TO BRUISE [None]
  - DYSPHAGIA [None]
  - CEREBRAL SMALL VESSEL ISCHAEMIC DISEASE [None]
  - PERITONEAL CYST [None]
  - LOWER LIMB FRACTURE [None]
  - LIVER DISORDER [None]
  - NEPHROLITHIASIS [None]
  - ADVERSE EVENT [None]
  - BLOOD GLUCOSE INCREASED [None]
  - FALL [None]
  - SMALL INTESTINAL OBSTRUCTION [None]
  - OEDEMA PERIPHERAL [None]
  - PAIN [None]
  - ARTERIOSCLEROSIS [None]
  - CAROTID ARTERIOSCLEROSIS [None]
  - ASCITES [None]
  - HYPOTENSION [None]
  - ENDOCARDITIS BACTERIAL [None]
  - PROTEIN TOTAL DECREASED [None]
  - HEPATIC STEATOSIS [None]
  - TINNITUS [None]
  - OSTEOPENIA [None]
  - NERVOUS SYSTEM DISORDER [None]
  - ABDOMINAL HERNIA [None]
  - CHOLELITHIASIS [None]
  - HYPONATRAEMIA [None]
  - ANXIETY [None]
  - WEIGHT DECREASED [None]
  - DEHYDRATION [None]
  - HEPATIC ENCEPHALOPATHY [None]
  - PORTAL HYPERTENSION [None]
  - PLEURAL EFFUSION [None]
  - VENOUS INSUFFICIENCY [None]
  - SPINAL COMPRESSION FRACTURE [None]
  - OESOPHAGEAL OBSTRUCTION [None]
  - ATELECTASIS [None]
  - CHRONIC HEPATIC FAILURE [None]
  - SEPSIS [None]
  - KLEBSIELLA INFECTION [None]
  - ARTHRALGIA [None]
